FAERS Safety Report 17478625 (Version 1)
Quarter: 2020Q1

REPORT INFORMATION
  Report Type: Spontaneous
  Country: BG (occurrence: BG)
  Receive Date: 20200228
  Receipt Date: 20200228
  Transmission Date: 20200409
  Serious: Yes (Hospitalization, Other)
  Sender: FDA-Public Use
  Company Number: BG-ASTRAZENECA-2020SE26527

PATIENT
  Age: 63 Year
  Sex: Male

DRUGS (9)
  1. BRILIQUE [Concomitant]
     Active Substance: TICAGRELOR
     Dosage: 60 MG 2 INTO 1 TABLET DAILY
     Route: 065
     Dates: start: 2020
  2. PANTOPRAZOLE [Concomitant]
     Active Substance: PANTOPRAZOLE
     Route: 065
  3. CRESTOR [Suspect]
     Active Substance: ROSUVASTATIN CALCIUM
     Route: 048
  4. ACETYLSALICYLIC ACID [Concomitant]
     Active Substance: ASPIRIN
     Route: 065
  5. BRILIQUE [Concomitant]
     Active Substance: TICAGRELOR
     Dosage: 90 MG 2 INTO 1 TABLET DAILY FOR 1 YEAR
     Route: 065
     Dates: end: 201808
  6. BISOPROLOL [Concomitant]
     Active Substance: BISOPROLOL
     Route: 065
  7. ISOSORBIDE DINITRATE. [Concomitant]
     Active Substance: ISOSORBIDE DINITRATE
     Dosage: 1 PLUS 1 PLUS 0 TABLETS DAILY
     Route: 065
  8. PLENDIL [Suspect]
     Active Substance: FELODIPINE
     Route: 048
  9. VALSARTAN. [Concomitant]
     Active Substance: VALSARTAN
     Dosage: 160 MG, 1 TABLET IN THE MORNING AND HALD A TABLET IN THE EVENING
     Route: 065

REACTIONS (10)
  - Chronic kidney disease [Unknown]
  - Blood glucose increased [Unknown]
  - Acute myocardial infarction [Unknown]
  - Ventricular fibrillation [Unknown]
  - Acute coronary syndrome [Unknown]
  - Left ventricular hypertrophy [Unknown]
  - Aortic valve incompetence [Unknown]
  - Loss of consciousness [Unknown]
  - Mitral valve incompetence [Unknown]
  - Melaena [Unknown]
